FAERS Safety Report 16635830 (Version 3)
Quarter: 2019Q3

REPORT INFORMATION
  Report Type: Report from Study
  Country: DE (occurrence: DE)
  Receive Date: 20190726
  Receipt Date: 20190830
  Transmission Date: 20191004
  Serious: Yes (Life-Threatening)
  Sender: FDA-Public Use
  Company Number: PHHY2019DE171030

PATIENT
  Age: 61 Year
  Sex: Female
  Weight: 77 kg

DRUGS (9)
  1. CANDESARTAN. [Concomitant]
     Active Substance: CANDESARTAN
     Indication: HYPERTENSION
     Dosage: UNK
     Route: 048
     Dates: start: 201407
  2. METFORMIN [Concomitant]
     Active Substance: METFORMIN HYDROCHLORIDE
     Indication: TYPE 2 DIABETES MELLITUS
     Dosage: UNK
     Route: 048
     Dates: start: 20160601
  3. OMNITROPE [Suspect]
     Active Substance: SOMATROPIN
     Dosage: 0.2 MG, QD (5 MG/ 1.5 ML SOLUTION FOR INJECTION)
     Route: 058
     Dates: start: 20171115, end: 20180717
  4. ATORVASTATIN [Concomitant]
     Active Substance: ATORVASTATIN
     Indication: PROPHYLAXIS
     Dosage: UNK
     Route: 048
     Dates: start: 20171024
  5. ATENOLOL. [Concomitant]
     Active Substance: ATENOLOL
     Indication: HYPERTENSION
     Dosage: UNK
     Route: 048
     Dates: start: 1996
  6. LEVOTHYROXIN [Concomitant]
     Active Substance: LEVOTHYROXINE
     Dosage: 112 UG, UNK
     Route: 048
     Dates: start: 201711
  7. TRIAMTERENE. [Concomitant]
     Active Substance: TRIAMTERENE
     Indication: HYPERTENSION
     Dosage: 50/25MG
     Route: 048
     Dates: start: 1996
  8. OMNITROPE [Suspect]
     Active Substance: SOMATROPIN
     Indication: GROWTH HORMONE DEFICIENCY
     Dosage: 0.2 MG, QD (5 MG/ 1.5 ML SOLUTION FOR INJECTION)
     Route: 058
     Dates: start: 20160615, end: 20171114
  9. LEVOTHYROXIN [Concomitant]
     Active Substance: LEVOTHYROXINE
     Indication: PRODUCT USED FOR UNKNOWN INDICATION
     Dosage: 125 UG, UNK
     Route: 048
     Dates: start: 1997, end: 201711

REACTIONS (2)
  - Lymphadenopathy [Recovering/Resolving]
  - Hodgkin^s disease [Recovering/Resolving]

NARRATIVE: CASE EVENT DATE: 201805
